FAERS Safety Report 16856495 (Version 30)
Quarter: 2020Q4

REPORT INFORMATION
  Report Type: Spontaneous
  Country: IL (occurrence: IL)
  Receive Date: 20190926
  Receipt Date: 20201012
  Transmission Date: 20210113
  Serious: Yes (Life-Threatening, Hospitalization, Other)
  Sender: FDA-Public Use
  Company Number: IL-PFIZER INC-2019118031

PATIENT
  Age: 85 Year
  Sex: Male
  Weight: 75 kg

DRUGS (34)
  1. ELELYSO [Suspect]
     Active Substance: TALIGLUCERASE ALFA
     Dosage: 2400 IU, 32 UNIT/KG, TWICE A MONTH
     Dates: start: 20190623
  2. ELELYSO [Suspect]
     Active Substance: TALIGLUCERASE ALFA
     Dosage: 2400 IU, 32 UNIT/KG, TWICE A MONTH
     Dates: start: 20191114
  3. LERCANIDIPINE [Concomitant]
     Active Substance: LERCANIDIPINE
     Indication: BLOOD PRESSURE MEASUREMENT
     Dosage: 10 MG, 2X/DAY
     Route: 048
     Dates: start: 20200618
  4. ELELYSO [Suspect]
     Active Substance: TALIGLUCERASE ALFA
     Dosage: 2400 IU, 32 UNIT/KG, TWICE A MONTH
     Dates: start: 20190806
  5. ELELYSO [Suspect]
     Active Substance: TALIGLUCERASE ALFA
     Dosage: 2400 IU, 32 UNIT/KG, TWICE A MONTH
     Dates: start: 20191003
  6. BISOPROLOL [Concomitant]
     Active Substance: BISOPROLOL
     Indication: MYOCARDIAL ISCHAEMIA
     Dosage: 1.25 MG, 1X/DAY
  7. ELELYSO [Suspect]
     Active Substance: TALIGLUCERASE ALFA
     Dosage: 2400 IU, 32 UNIT/KG, TWICE A MONTH
     Dates: start: 20190430
  8. ELELYSO [Suspect]
     Active Substance: TALIGLUCERASE ALFA
     Dosage: 2400 IU, 32 UNIT/KG, TWICE A MONTH
     Dates: start: 20190723
  9. FRUSEMIDE [FUROSEMIDE] [Concomitant]
     Active Substance: FUROSEMIDE
     Indication: MYOCARDIAL ISCHAEMIA
     Dosage: 40 MG, 1X/DAY
  10. SPIRONOLACTONE. [Concomitant]
     Active Substance: SPIRONOLACTONE
     Indication: MYOCARDIAL ISCHAEMIA
     Dosage: 12.5 MG, 1X/DAY
  11. INSULIN GLULISINE [Concomitant]
     Active Substance: INSULIN GLULISINE
     Dosage: 8 IU, 3X/DAY
     Route: 058
     Dates: start: 20200618
  12. DUTASTERIDE. [Concomitant]
     Active Substance: DUTASTERIDE
     Indication: URINARY RETENTION
     Dosage: 0.5 MG, 1X/DAY
     Dates: start: 20200618
  13. ELELYSO [Suspect]
     Active Substance: TALIGLUCERASE ALFA
     Dosage: 1200 IU, TWICE A MONTH
     Route: 042
  14. ELELYSO [Suspect]
     Active Substance: TALIGLUCERASE ALFA
     Dosage: UNK
     Dates: start: 20200427
  15. ELELYSO [Suspect]
     Active Substance: TALIGLUCERASE ALFA
     Dosage: 2400 IU, 32 UNIT/KG, TWICE A MONTH
     Dates: start: 20190710
  16. ELELYSO [Suspect]
     Active Substance: TALIGLUCERASE ALFA
     Dosage: 2400 IU, 32 UNIT/KG, TWICE A MONTH
     Dates: start: 20191023
  17. ELELYSO [Suspect]
     Active Substance: TALIGLUCERASE ALFA
     Dosage: 2400 IU, 32 UNIT/KG, TWICE A MONTH
     Dates: start: 20190327
  18. VILDAGLIPTIN [Concomitant]
     Active Substance: VILDAGLIPTIN
     Indication: MYOCARDIAL ISCHAEMIA
     Dosage: 50 MG, 1X/DAY
  19. ELELYSO [Suspect]
     Active Substance: TALIGLUCERASE ALFA
     Dosage: 1200 IU, TWICE A MONTH
     Route: 042
  20. ELELYSO [Suspect]
     Active Substance: TALIGLUCERASE ALFA
     Dosage: UNK
     Dates: start: 20200524
  21. INSULIN GLULISINE [Concomitant]
     Active Substance: INSULIN GLULISINE
     Dosage: 18 IU, 1X/DAY
     Route: 058
     Dates: start: 20200618
  22. ELELYSO [Suspect]
     Active Substance: TALIGLUCERASE ALFA
     Indication: GAUCHER^S DISEASE
     Dosage: 1200 IU, TWICE A MONTH
     Route: 042
     Dates: start: 201901
  23. ELELYSO [Suspect]
     Active Substance: TALIGLUCERASE ALFA
     Dosage: 2400 IU (32 UNIT/KG), TWICE A MONTH
     Route: 042
     Dates: start: 20190205, end: 20200618
  24. ELELYSO [Suspect]
     Active Substance: TALIGLUCERASE ALFA
     Dosage: UNK
     Dates: start: 20200416
  25. ELELYSO [Suspect]
     Active Substance: TALIGLUCERASE ALFA
     Dosage: UNK
     Dates: start: 20200511
  26. ELELYSO [Suspect]
     Active Substance: TALIGLUCERASE ALFA
     Dosage: 2400 IU, 32 UNIT/KG, TWICE A MONTH
     Dates: start: 20190411
  27. ELELYSO [Suspect]
     Active Substance: TALIGLUCERASE ALFA
     Dosage: 2400 IU, 32 UNIT/KG, TWICE A MONTH
     Dates: start: 20190612
  28. ELELYSO [Suspect]
     Active Substance: TALIGLUCERASE ALFA
     Dosage: 2400 IU, 32 UNIT/KG, TWICE A MONTH
     Dates: start: 20190904
  29. VANCOMYCIN [Concomitant]
     Active Substance: VANCOMYCIN
     Indication: INFECTION
     Dosage: 500 MG, 2X/DAY
     Route: 042
     Dates: start: 20200618
  30. ELELYSO [Suspect]
     Active Substance: TALIGLUCERASE ALFA
     Dosage: 1200 IU, TWICE A MONTH
     Route: 042
  31. ELELYSO [Suspect]
     Active Substance: TALIGLUCERASE ALFA
     Dosage: 1200 IU, TWICE A MONTH
     Route: 042
  32. ELELYSO [Suspect]
     Active Substance: TALIGLUCERASE ALFA
     Dosage: 2400 IU, 32 UNIT/KG, TWICE A MONTH
     Dates: start: 20190516
  33. ELELYSO [Suspect]
     Active Substance: TALIGLUCERASE ALFA
     Dosage: 2400 IU, 32 UNIT/KG, TWICE A MONTH
     Dates: start: 20190820
  34. REPAGLINIDE. [Concomitant]
     Active Substance: REPAGLINIDE
     Indication: MYOCARDIAL ISCHAEMIA
     Dosage: 1 MG, 3X/DAY

REACTIONS (19)
  - Pulmonary hypertension [Unknown]
  - Bronchitis [Unknown]
  - Weight decreased [Unknown]
  - Hypertension [Unknown]
  - Pyrexia [Unknown]
  - Urinary tract infection [Unknown]
  - Arrhythmia [Recovered/Resolved]
  - Faeces discoloured [Unknown]
  - Atrial fibrillation [Not Recovered/Not Resolved]
  - Blood pressure fluctuation [Unknown]
  - Cough [Unknown]
  - Inappropriate schedule of product administration [Unknown]
  - Sepsis [Unknown]
  - Heart rate decreased [Unknown]
  - Endocarditis bacterial [Recovering/Resolving]
  - Anaemia [Recovered/Resolved with Sequelae]
  - Heart rate irregular [Unknown]
  - Bradycardia [Recovered/Resolved]
  - Blood potassium increased [Recovered/Resolved]

NARRATIVE: CASE EVENT DATE: 2019
